FAERS Safety Report 18631901 (Version 1)
Quarter: 2020Q4

REPORT INFORMATION
  Report Type: Report from Study
  Country: None (occurrence: US)
  Receive Date: 20201217
  Receipt Date: 20201217
  Transmission Date: 20210114
  Serious: Yes (Other)
  Sender: FDA-Public Use
  Company Number: US-ABBVIE-20K-163-3690911-00

PATIENT
  Sex: Female

DRUGS (1)
  1. HUMIRA [Suspect]
     Active Substance: ADALIMUMAB
     Indication: UVEITIS
     Route: 058

REACTIONS (6)
  - Sarcoidosis [Recovering/Resolving]
  - Uterine haemorrhage [Unknown]
  - Insomnia [Unknown]
  - Uterine polyp [Unknown]
  - Lymphadenopathy [Unknown]
  - Migraine [Unknown]
